FAERS Safety Report 16710483 (Version 3)
Quarter: 2019Q3

REPORT INFORMATION
  Report Type: Report from Study
  Country: CA (occurrence: CA)
  Receive Date: 20190816
  Receipt Date: 20190918
  Transmission Date: 20191004
  Serious: Yes (Hospitalization, Other)
  Sender: FDA-Public Use
  Company Number: CA-TAIHO ONCOLOGY  INC-EU-2019-02718

PATIENT
  Sex: Male
  Weight: 90 kg

DRUGS (1)
  1. LONSURF [Suspect]
     Active Substance: TIPIRACIL HYDROCHLORIDE\TRIFLURIDINE
     Indication: COLORECTAL CANCER METASTATIC
     Dosage: CYCLE 1?CYCLE 2 WILL BE DELAYED.
     Route: 048
     Dates: start: 20190724, end: 20190804

REACTIONS (7)
  - Blood test abnormal [Unknown]
  - Transfusion [Unknown]
  - Fibrin D dimer increased [Unknown]
  - Blood creatinine increased [Unknown]
  - Infection [Unknown]
  - Nephrostomy [Unknown]
  - General physical health deterioration [Unknown]

NARRATIVE: CASE EVENT DATE: 2019
